FAERS Safety Report 15372519 (Version 1)
Quarter: 2018Q3

REPORT INFORMATION
  Report Type: Spontaneous
  Country: US (occurrence: US)
  Receive Date: 20180911
  Receipt Date: 20180911
  Transmission Date: 20181010
  Serious: No
  Sender: FDA-Public Use
  Company Number: US-009507513-1808USA008317

PATIENT
  Age: 23 Year
  Sex: Female
  Weight: 62.59 kg

DRUGS (1)
  1. NEXPLANON [Suspect]
     Active Substance: ETONOGESTREL
     Dosage: THE UNIT, UNK
     Route: 059
     Dates: start: 20180709, end: 20180815

REACTIONS (6)
  - Peripheral swelling [Unknown]
  - Erythema [Unknown]
  - Feeling hot [Unknown]
  - Eczema [Unknown]
  - Pain in extremity [Unknown]
  - Implant site pustules [Unknown]

NARRATIVE: CASE EVENT DATE: 2018
